FAERS Safety Report 8330298-9 (Version None)
Quarter: 2012Q2

REPORT INFORMATION
  Report Type: 
  Country: None (occurrence: None)
  Receive Date: 20120502
  Receipt Date: 20120420
  Transmission Date: 20120825
  Serious: Yes (Other)
  Sender: FDA-Public Use
  Company Number: DE-FRI-1000022480

PATIENT
  Sex: Female
  Weight: 85 kg

DRUGS (2)
  1. ESCITALOPRAM [Suspect]
     Indication: DEPRESSION
     Dosage: 20 MG
     Route: 048
  2. ESCITALOPRAM [Suspect]
     Dosage: 10 MG
     Route: 048

REACTIONS (2)
  - CAESAREAN SECTION [None]
  - PREGNANCY [None]
